FAERS Safety Report 8348243 (Version 2)
Quarter: 2013Q1

REPORT INFORMATION
  Report Type: Spontaneous
  Country: US (occurrence: None)
  Receive Date: 20120112
  Receipt Date: 20130214
  Transmission Date: 20140127
  Serious: Yes (Hospitalization)
  Sender: FDA-Public Use
  Company Number: 2011AP003199

PATIENT
  Age: 84 Year
  Sex: Male

DRUGS (20)
  1. RISPERIDONE [Suspect]
     Indication: AGITATION
     Dosage: 0.25 MG, BID
     Route: 048
  2. DONEPEZIL HYDROCHLORIDE [Suspect]
     Indication: AGITATION
     Dosage: 10;5 MG, QD
  3. MIRTAZAPINE [Suspect]
     Indication: PRODUCT USED FOR UNKNOWN INDICATION
     Dosage: 45;30 MG, QD
  4. ALLOPURINOL [Suspect]
     Indication: PRODUCT USED FOR UNKNOWN INDICATION
     Dosage: 300;1000 MG, QD
  5. GABAPENTIN [Suspect]
     Indication: PRODUCT USED FOR UNKNOWN INDICATION
     Dosage: 100 MG, BID
  6. HYDROCHLOROTHIAZIDE [Suspect]
     Indication: PRODUCT USED FOR UNKNOWN INDICATION
     Dosage: 25 MG, QD
  7. LISINOPRIL [Suspect]
     Indication: PRODUCT USED FOR UNKNOWN INDICATION
     Dosage: 40 MG, QD
  8. OMEPRAZOLE [Suspect]
     Indication: PRODUCT USED FOR UNKNOWN INDICATION
     Dosage: 40 MG, BID
  9. CITALOPRAM HYDROBROMIDE [Suspect]
     Indication: PRODUCT USED FOR UNKNOWN INDICATION
  10. SERTRALINE HYDROCHLORIDE [Suspect]
     Indication: PRODUCT USED FOR UNKNOWN INDICATION
  11. ZOLPIDEM TARTRATE [Suspect]
     Indication: PRODUCT USED FOR UNKNOWN INDICATION
  12. BUSPIRONE HYDROCHLORIDE [Suspect]
     Indication: PRODUCT USED FOR UNKNOWN INDICATION
  13. PRAVASTATIN SODIUM [Suspect]
     Indication: PRODUCT USED FOR UNKNOWN INDICATION
     Dosage: 10 MG, HS
  14. BUPROPION HYDROCHLORIDE [Suspect]
     Indication: PRODUCT USED FOR UNKNOWN INDICATION
     Dosage: 100;150;75 MG, QD
  15. ACETAMINOPHEN [Suspect]
     Indication: PRODUCT USED FOR UNKNOWN INDICATION
     Dosage: 650 MG, Q6H
  16. NITROGLYCERIN [Suspect]
     Indication: CHEST PAIN
     Dosage: 0.4 MG
  17. VENLAFAXINE [Suspect]
     Indication: PRODUCT USED FOR UNKNOWN INDICATION
  18. ATENOLOL [Suspect]
     Indication: PRODUCT USED FOR UNKNOWN INDICATION
     Dosage: 50 MG, QD
  19. ASPIRIN [Suspect]
     Indication: PRODUCT USED FOR UNKNOWN INDICATION
     Dosage: 81 MG, QD
  20. LIDOCAINE [Concomitant]

REACTIONS (22)
  - Fall [None]
  - Ataxia [None]
  - Myoclonus [None]
  - Pneumonia [None]
  - Muscular weakness [None]
  - Gait disturbance [None]
  - Delirium [None]
  - Psychotic disorder [None]
  - Agitation [None]
  - Nightmare [None]
  - Gastrointestinal disorder [None]
  - Drug interaction [None]
  - Mood altered [None]
  - Orthostatic tremor [None]
  - Renal failure acute [None]
  - Respiratory tract infection [None]
  - Mental status changes [None]
  - Confusional state [None]
  - Delusion [None]
  - Hallucination, visual [None]
  - Lethargy [None]
  - Drug ineffective [None]
